FAERS Safety Report 15571567 (Version 13)
Quarter: 2022Q2

REPORT INFORMATION
  Report Type: Report from Study
  Country: GB (occurrence: GB)
  Receive Date: 20181031
  Receipt Date: 20220601
  Transmission Date: 20220721
  Serious: Yes (Congenital Anomaly, Other)
  Sender: FDA-Public Use
  Company Number: GB-TEVA-2018-GB-899342

PATIENT

DRUGS (4)
  1. ABACAVIR SULFATE\LAMIVUDINE [Suspect]
     Active Substance: ABACAVIR SULFATE\LAMIVUDINE
     Indication: Antiviral treatment
     Dosage: 1 DOSAGE FORM, QD, (MOTHERS DOSING)
     Route: 064
     Dates: start: 20170601
  2. ABACAVIR SULFATE\LAMIVUDINE [Suspect]
     Active Substance: ABACAVIR SULFATE\LAMIVUDINE
     Indication: HIV infection
     Dosage: 1 DOSAGE FORM, QD
     Route: 064
     Dates: start: 20171214
  3. EDURANT [Suspect]
     Active Substance: RILPIVIRINE HYDROCHLORIDE
     Indication: HIV infection
     Dosage: 25 MILLIGRAM, QD, (MOTHERS DOSING)
     Route: 064
     Dates: start: 20170601
  4. EDURANT [Suspect]
     Active Substance: RILPIVIRINE HYDROCHLORIDE
     Dosage: 25 MILLIGRAM, QD
     Route: 064
     Dates: start: 20171214

REACTIONS (4)
  - Congenital pyelocaliectasis [Unknown]
  - Congenital hydronephrosis [Unknown]
  - Pyelocaliectasis [Unknown]
  - Foetal exposure during pregnancy [Recovered/Resolved]

NARRATIVE: CASE EVENT DATE: 20170601
